FAERS Safety Report 15257312 (Version 1)
Quarter: 2018Q3

REPORT INFORMATION
  Report Type: Spontaneous
  Country: US (occurrence: US)
  Receive Date: 20180808
  Receipt Date: 20180808
  Transmission Date: 20181010
  Serious: No
  Sender: FDA-Public Use
  Company Number: US-GALDERMA-US18022958

PATIENT
  Age: 16 Year
  Sex: Male

DRUGS (13)
  1. PROACTIV MD BALANCING TONER [Concomitant]
     Active Substance: COSMETICS
     Indication: ACNE
     Route: 061
     Dates: start: 20170608, end: 20180330
  2. PROACTIV MD BALANCING TONER [Concomitant]
     Active Substance: COSMETICS
     Dates: start: 20170608, end: 20180330
  3. PROACTIV SOLUTION BLACKHEAD DISSOLVING [Concomitant]
     Active Substance: SALICYLIC ACID
     Indication: ACNE
     Route: 061
     Dates: start: 20170608, end: 20180330
  4. PROACTIV MD BALANCING TONER [Concomitant]
     Active Substance: COSMETICS
     Dates: start: 20170608, end: 20180330
  5. PROACTIV MD BALANCING TONER [Concomitant]
     Active Substance: COSMETICS
     Dates: start: 20170608, end: 20180330
  6. PROACTIV MD BALANCING TONER [Concomitant]
     Active Substance: COSMETICS
     Dates: start: 20170608, end: 20180330
  7. PROACTIV MD BALANCING TONER [Concomitant]
     Active Substance: COSMETICS
     Dates: start: 20170608, end: 20180330
  8. PROACTIV MD DEEP CLEANSING FACE WASH [Concomitant]
     Active Substance: COSMETICS
     Indication: ACNE
     Route: 061
     Dates: start: 20170608, end: 20180330
  9. PROACTIV MD BALANCING TONER [Concomitant]
     Active Substance: COSMETICS
     Dates: start: 20170608, end: 20180330
  10. PROACTIV MD ADAPALENE ACNE TREATMENT [Suspect]
     Active Substance: ADAPALENE
     Indication: ACNE
     Dosage: 0.1%
     Route: 061
     Dates: start: 20170608, end: 20180330
  11. PROACTIV MD DAILY OIL CONTROL SPF 30 [Suspect]
     Active Substance: AVOBENZONE\OCTISALATE\OCTOCRYLENE
     Indication: ACNE
     Route: 061
     Dates: start: 20170608, end: 20180330
  12. PROACTIV SKIN PURIFYING MASK [Concomitant]
     Active Substance: SULFUR
     Indication: ACNE
     Route: 061
     Dates: start: 20170608, end: 20180330
  13. PROACTIV DEEP CLEANSING WASH [Concomitant]
     Active Substance: SALICYLIC ACID
     Indication: ACNE
     Route: 061
     Dates: start: 20170608, end: 20180330

REACTIONS (2)
  - Rash [Recovered/Resolved]
  - Inappropriate schedule of drug administration [Recovered/Resolved]

NARRATIVE: CASE EVENT DATE: 20170615
